FAERS Safety Report 17813792 (Version 2)
Quarter: 2022Q4

REPORT INFORMATION
  Report Type: Spontaneous
  Country: US (occurrence: US)
  Receive Date: 20200521
  Receipt Date: 20221010
  Transmission Date: 20230112
  Serious: No
  Sender: FDA-Public Use
  Company Number: US-BIOGEN-2020BI00877769

PATIENT
  Sex: Female

DRUGS (5)
  1. SPINRAZA [Suspect]
     Active Substance: NUSINERSEN
     Indication: Spinal muscular atrophy
     Dosage: FIRST 3 LOADING DOSES EVERY 14 DAYS
     Route: 050
     Dates: start: 20190718, end: 20191016
  2. SPINRAZA [Suspect]
     Active Substance: NUSINERSEN
     Dosage: FIRST 3 LOADING DOSES EVERY 14 DAYS
     Route: 050
     Dates: start: 20191017, end: 20200115
  3. SPINRAZA [Suspect]
     Active Substance: NUSINERSEN
     Dosage: FIRST 3 LOADING DOSES EVERY 14 DAYS
     Route: 050
     Dates: start: 20200116, end: 20200415
  4. SPINRAZA [Suspect]
     Active Substance: NUSINERSEN
     Dosage: 4TH LOADING DOSE ONCE AFTER 30 DAYS
     Route: 050
     Dates: start: 20200415, end: 20200516
  5. SPINRAZA [Suspect]
     Active Substance: NUSINERSEN
     Route: 050
     Dates: start: 20200516, end: 2022

REACTIONS (1)
  - Therapeutic response shortened [Recovered/Resolved]
